FAERS Safety Report 22280695 (Version 1)
Quarter: 2023Q2

REPORT INFORMATION
  Report Type: Spontaneous
  Country: US (occurrence: None)
  Receive Date: 20230502
  Receipt Date: 20230502
  Transmission Date: 20230721
  Serious: Yes (unspecified)
  Sender: FDA-Public Use
  Company Number: None

PATIENT
  Age: 6 Month
  Sex: Female
  Weight: 7.65 kg

DRUGS (3)
  1. HOMEOPATHICS [Suspect]
     Active Substance: ARNICA MONTANA\CAUSTICUM\COMFREY ROOT\HOMEOPATHICS\LEDUM PALUSTRE TWIG\PSEUDOGNAPHALIUM OBTUSIFOLIUM
     Indication: Teething
     Dosage: OTHER QUANTITY : 1 DROPPER;?FREQUENCY : AS NEEDED;?
     Route: 048
     Dates: start: 20230502, end: 20230502
  2. TYLENOL [Concomitant]
     Active Substance: ACETAMINOPHEN
  3. Daily probiotic [Concomitant]

REACTIONS (4)
  - Vomiting projectile [None]
  - Retching [None]
  - Diarrhoea [None]
  - Hypophagia [None]

NARRATIVE: CASE EVENT DATE: 20230502
